FAERS Safety Report 22172736 (Version 2)
Quarter: 2023Q2

REPORT INFORMATION
  Report Type: Report from Study
  Country: HN (occurrence: HN)
  Receive Date: 20230404
  Receipt Date: 20230518
  Transmission Date: 20230721
  Serious: Yes (Other)
  Sender: FDA-Public Use
  Company Number: HN-002147023-NVSC2023HN074610

PATIENT
  Age: 52 Year
  Sex: Female
  Weight: 95.238 kg

DRUGS (5)
  1. DIOVAN [Suspect]
     Active Substance: VALSARTAN
     Indication: Hypertension
     Dosage: 320 MG
     Route: 048
     Dates: start: 202208, end: 20221215
  2. DIOVAN [Suspect]
     Active Substance: VALSARTAN
     Dosage: 160 MG, QD
     Route: 048
     Dates: start: 20221215
  3. DIOVAN [Suspect]
     Active Substance: VALSARTAN
     Dosage: 160 MG
     Route: 048
     Dates: start: 20221231
  4. CARVEDILOL [Concomitant]
     Active Substance: CARVEDILOL
     Indication: Arrhythmia
     Dosage: 25 MG, BID
     Route: 048
     Dates: start: 2015
  5. Daflon [Concomitant]
     Indication: Peripheral vascular disorder
     Dosage: 500 MG, QD
     Route: 048
     Dates: start: 2020

REACTIONS (3)
  - Arrhythmia [Unknown]
  - Hypotension [Recovered/Resolved]
  - Therapeutic response unexpected [Recovered/Resolved]

NARRATIVE: CASE EVENT DATE: 20220801
